FAERS Safety Report 7123641-X (Version None)
Quarter: 2010Q4

REPORT INFORMATION
  Report Type: 
  Country: None (occurrence: None)
  Receive Date: 20101125
  Receipt Date: 20101119
  Transmission Date: 20110411
  Serious: Yes (Hospitalization)
  Sender: FDA-Public Use
  Company Number: PL-BRISTOL-MYERS SQUIBB COMPANY-15346661

PATIENT
  Age: 53 Year
  Sex: Male
  Weight: 100 kg

DRUGS (8)
  1. CISPLATIN [Suspect]
     Indication: NON-SMALL CELL LUNG CANCER STAGE IV
     Dosage: THERAPY:ONGOING LAST DOSE BEFORE EVENT:20SEP10
     Route: 065
     Dates: start: 20100809
  2. NECITUMUMAB [Suspect]
     Indication: NON-SMALL CELL LUNG CANCER STAGE IV
     Dosage: LIQUID;ONGOING LAST DOSE BEFORE EVENT:19AUG10 ALSO GIVEN ON 27SEP10
     Route: 065
     Dates: start: 20100809
  3. GEMZAR [Suspect]
     Indication: NON-SMALL CELL LUNG CANCER STAGE IV
     Dosage: 9AUG10,ONGOING LAST DOSE BEFORE EVENT:19AUG10 ALSO GIVEN ON 27SEP10
     Route: 065
     Dates: start: 20100809
  4. PERINDOPRIL [Concomitant]
  5. BISOPROLOL FUMARATE [Concomitant]
  6. INSULINE [Concomitant]
     Dates: start: 20100823
  7. HYDROCORTISONE ACETATE [Concomitant]
     Dosage: CREAM
     Dates: start: 20100830
  8. MYDOCALM [Concomitant]
     Dates: start: 20100927

REACTIONS (1)
  - SCIATICA [None]
